FAERS Safety Report 5429065-5 (Version None)
Quarter: 2007Q3

REPORT INFORMATION
  Report Type: 
  Country: None (occurrence: None)
  Receive Date: 20070829
  Receipt Date: 20070702
  Transmission Date: 20080115
  Serious: No
  Sender: FDA-Public Use
  Company Number: A0658230A

PATIENT
  Age: 10 Year
  Sex: Female

DRUGS (1)
  1. MALARONE [Suspect]
     Indication: PROPHYLAXIS
     Dosage: 3TAB PER DAY
     Route: 048

REACTIONS (1)
  - DRUG DISPENSING ERROR [None]
